FAERS Safety Report 18413898 (Version 1)
Quarter: 2020Q4

REPORT INFORMATION
  Report Type: Report from Study
  Country: None (occurrence: DE)
  Receive Date: 20201022
  Receipt Date: 20201022
  Transmission Date: 20210114
  Serious: Yes (Other)
  Sender: FDA-Public Use
  Company Number: DE-ABBVIE-20K-062-3612876-00

PATIENT
  Age: 48 Year
  Sex: Male
  Weight: 73 kg

DRUGS (1)
  1. MAVIRET [Suspect]
     Active Substance: GLECAPREVIR\PIBRENTASVIR
     Indication: CHRONIC HEPATITIS C
     Dosage: 100 MG GLECAPREVIR/40 MG PIBRENTASVIR/3 TABLETS DAILY
     Route: 048
     Dates: start: 20191112, end: 20200107

REACTIONS (8)
  - Phlebitis [Unknown]
  - Fistula [Unknown]
  - Injection site abscess [Unknown]
  - Withdrawal syndrome [Not Recovered/Not Resolved]
  - Groin abscess [Unknown]
  - Unevaluable event [Unknown]
  - Angiopathy [Unknown]
  - Fatigue [Unknown]

NARRATIVE: CASE EVENT DATE: 20200623
